FAERS Safety Report 5042840-4 (Version None)
Quarter: 2006Q3

REPORT INFORMATION
  Report Type: 
  Country: None (occurrence: None)
  Receive Date: 20060705
  Receipt Date: 20060630
  Transmission Date: 20061208
  Serious: Yes (Other)
  Sender: FDA-Public Use
  Company Number: 1-14334415

PATIENT
  Age: 33 Year
  Sex: Male

DRUGS (2)
  1. LAMICTAL [Suspect]
     Indication: BIPOLAR DISORDER
     Dosage: 25MG PER DAY
     Route: 048
     Dates: start: 20060602
  2. EFFEXOR XR [Suspect]
     Indication: BIPOLAR DISORDER
     Dosage: 187.5MG UNKNOWN
     Route: 048

REACTIONS (9)
  - AMNESIA [None]
  - BLOOD PRESSURE INCREASED [None]
  - DIARRHOEA [None]
  - DISSOCIATION [None]
  - FEELING ABNORMAL [None]
  - HAEMATEMESIS [None]
  - MIGRAINE [None]
  - NAUSEA [None]
  - VOMITING [None]
